FAERS Safety Report 8316299 (Version 4)
Quarter: 2014Q1

REPORT INFORMATION
  Report Type: Report from Study
  Country: FR (occurrence: FR)
  Receive Date: 20111229
  Receipt Date: 20140319
  Transmission Date: 20141002
  Serious: Yes (Hospitalization)
  Sender: FDA-Public Use
  Company Number: FR-ROCHE-1024601

PATIENT
  Age: 50 Year
  Sex: Male
  Weight: 44 kg

DRUGS (4)
  1. PEG-INTERFERON ALFA 2A [Suspect]
     Indication: CHRONIC HEPATITIS B
     Route: 065
     Dates: start: 20111013, end: 20111221
  2. PEG-INTERFERON ALFA 2A [Suspect]
     Dosage: 365 IU/L
     Route: 065
     Dates: start: 20111107
  3. PEG-INTERFERON ALFA 2A [Suspect]
     Dosage: 691 IU/L
     Route: 065
     Dates: start: 20111205, end: 20111221
  4. TENOFOVIR [Suspect]
     Indication: CHRONIC HEPATITIS B
     Route: 065
     Dates: start: 20091022

REACTIONS (3)
  - Cholestasis [Recovering/Resolving]
  - Pyrexia [Recovering/Resolving]
  - Lung disorder [Recovering/Resolving]
